FAERS Safety Report 11218505 (Version 2)
Quarter: 2015Q3

REPORT INFORMATION
  Report Type: Spontaneous
  Country: US (occurrence: US)
  Receive Date: 20150625
  Receipt Date: 20150721
  Transmission Date: 20151125
  Serious: Yes (Other)
  Sender: FDA-Public Use
  Company Number: US-PFIZER INC-2015209535

PATIENT
  Age: 64 Year
  Sex: Female

DRUGS (12)
  1. HYDROCHLOROTHIAZIDE W/TRIAMTERENE [Suspect]
     Active Substance: HYDROCHLOROTHIAZIDE\TRIAMTERENE
     Indication: PERIPHERAL SWELLING
     Dosage: TRIAMTERENE HCTZ 37.5-25 MG, 1X/DAY
     Dates: start: 20150703
  2. CLONIDINE. [Concomitant]
     Active Substance: CLONIDINE
     Indication: ANXIETY
     Dosage: 4 MG, 1X/DAY (2 MG TWO AT NIGHT)
  3. TRAZODONE [Concomitant]
     Active Substance: TRAZODONE HYDROCHLORIDE
     Indication: SLEEP DISORDER
     Dosage: 100 MG, 1X/DAY
  4. METFORMIN [Concomitant]
     Active Substance: METFORMIN HYDROCHLORIDE
     Indication: DIABETES MELLITUS
     Dosage: [1000 MG TABLET IN TWO DIVIDED DOSES; ONE HALF IN MORNING AND ONE HALF IN EVENING], 2X/DAY
  5. LEVOTHYROXINE. [Concomitant]
     Active Substance: LEVOTHYROXINE
     Indication: THYROID DISORDER
     Dosage: UNK
  6. LOVASTATIN. [Concomitant]
     Active Substance: LOVASTATIN
     Dosage: UNK
  7. LYRICA [Suspect]
     Active Substance: PREGABALIN
     Indication: FIBROMYALGIA
     Dosage: 75 MG, 1X/DAY
     Route: 048
     Dates: start: 20150608
  8. LYRICA [Suspect]
     Active Substance: PREGABALIN
     Indication: PAIN
  9. HYDROCHLOROTHIAZIDE W/TRIAMTERENE [Suspect]
     Active Substance: HYDROCHLOROTHIAZIDE\TRIAMTERENE
     Indication: JOINT SWELLING
     Dosage: UNK
  10. AMLODIPINE BESILATE [Concomitant]
     Active Substance: AMLODIPINE BESYLATE
     Indication: HYPERTENSION
     Dosage: 10 MG, 1X/DAY
  11. CLONAZEPAM. [Concomitant]
     Active Substance: CLONAZEPAM
     Dosage: UNK
  12. LYRICA [Suspect]
     Active Substance: PREGABALIN
     Indication: PAIN IN EXTREMITY
     Dosage: 75 MG, ALTERNATE DAY
     Dates: start: 20150619, end: 20150628

REACTIONS (4)
  - Drug ineffective [Not Recovered/Not Resolved]
  - Visual impairment [Not Recovered/Not Resolved]
  - Rash [Not Recovered/Not Resolved]
  - Gingival swelling [Not Recovered/Not Resolved]

NARRATIVE: CASE EVENT DATE: 20150608
